FAERS Safety Report 7170475-6 (Version None)
Quarter: 2010Q4

REPORT INFORMATION
  Report Type: 
  Country: None (occurrence: None)
  Receive Date: 20101123
  Receipt Date: 20100917
  Transmission Date: 20110411
  Serious: No
  Sender: FDA-Public Use
  Company Number: 019006

PATIENT
  Sex: Female
  Weight: 61.2 kg

DRUGS (2)
  1. CIMZIA [Suspect]
     Indication: CROHN'S DISEASE
     Dosage: 2 SYRINGE MONTHLY SUBCUTANEOUS
     Route: 058
     Dates: start: 20100401
  2. AMBIEN [Concomitant]

REACTIONS (2)
  - FEELING ABNORMAL [None]
  - INFLUENZA LIKE ILLNESS [None]
